FAERS Safety Report 4473829-1 (Version None)
Quarter: 2004Q4

REPORT INFORMATION
  Report Type: 
  Country: None (occurrence: None)
  Receive Date: 20041008
  Receipt Date: 20041008
  Transmission Date: 20050328
  Serious: Yes (Other)
  Sender: FDA-Public Use
  Company Number: None

PATIENT
  Sex: Female
  Weight: 59.8748 kg

DRUGS (1)
  1. ROCEPHIN [Suspect]
     Indication: LYME DISEASE
     Dosage: 2 G IV PUSH Q 24 H
     Route: 040
     Dates: start: 20040928, end: 20041003

REACTIONS (3)
  - CHILLS [None]
  - PYREXIA [None]
  - URTICARIA [None]
